FAERS Safety Report 6963675-9 (Version None)
Quarter: 2010Q3

REPORT INFORMATION
  Report Type: 
  Country: None (occurrence: None)
  Receive Date: 20100902
  Receipt Date: 20100823
  Transmission Date: 20110219
  Serious: Yes (Hospitalization, Other)
  Sender: FDA-Public Use
  Company Number: GB-ABBOTT-09P-167-0580785-00

PATIENT
  Sex: Male
  Weight: 72 kg

DRUGS (6)
  1. HUMIRA [Suspect]
     Indication: RHEUMATOID ARTHRITIS
     Route: 058
     Dates: start: 20030213, end: 20090615
  2. HUMIRA [Suspect]
     Dates: start: 20090701
  3. ASPIRIN [Concomitant]
     Indication: ANGIOPATHY
     Route: 048
  4. SIMVASTATIN [Concomitant]
     Indication: ANGIOPATHY
     Route: 048
  5. DILTIAZEM [Concomitant]
     Indication: PRODUCT USED FOR UNKNOWN INDICATION
     Route: 048
  6. DILTRAYEM [Concomitant]
     Indication: ANGINA PECTORIS
     Route: 048

REACTIONS (9)
  - BLINDNESS UNILATERAL [None]
  - CAROTID ARTERIAL EMBOLUS [None]
  - CAROTID ARTERY DISEASE [None]
  - CAROTID ARTERY STENOSIS [None]
  - CAROTID ENDARTERECTOMY [None]
  - CEREBROVASCULAR ACCIDENT [None]
  - CORONARY ARTERY DISEASE [None]
  - RETINAL ARTERY OCCLUSION [None]
  - SUBARACHNOID HAEMORRHAGE [None]
